FAERS Safety Report 4902270-X (Version None)
Quarter: 2006Q1

REPORT INFORMATION
  Report Type: 
  Country: None (occurrence: None)
  Receive Date: 20060202
  Receipt Date: 20051231
  Transmission Date: 20060701
  Serious: Yes (Other)
  Sender: FDA-Public Use
  Company Number: 2005122003

PATIENT
  Age: 64 Year
  Sex: Female

DRUGS (3)
  1. CELEBREX [Suspect]
     Indication: PAIN
     Dosage: 200 MG (200 MG, 1 IN 1 D), ORAL
     Route: 048
     Dates: start: 20031107
  2. PERCOCET [Suspect]
     Indication: PAIN
     Dosage: 5 MG, ORAL
     Route: 048
     Dates: start: 20031107, end: 20031110
  3. ALTACE [Concomitant]

REACTIONS (11)
  - ABASIA [None]
  - ABDOMINAL DISCOMFORT [None]
  - BACK PAIN [None]
  - CARDIAC FLUTTER [None]
  - CHEST DISCOMFORT [None]
  - FATIGUE [None]
  - OEDEMA PERIPHERAL [None]
  - PAIN IN EXTREMITY [None]
  - POST PROCEDURAL COMPLICATION [None]
  - PROCEDURAL PAIN [None]
  - WEIGHT INCREASED [None]
